FAERS Safety Report 5466732-1 (Version None)
Quarter: 2007Q3

REPORT INFORMATION
  Report Type: 
  Country: None (occurrence: None)
  Receive Date: 20070925
  Receipt Date: 20070920
  Transmission Date: 20080115
  Serious: Yes (Other)
  Sender: FDA-Public Use
  Company Number: JP-AVENTIS-200712508JP

PATIENT
  Age: 67 Year
  Sex: Male

DRUGS (2)
  1. TAXOTERE [Suspect]
     Route: 041
     Dates: start: 20050101
  2. RADIATION THERAPY [Concomitant]
     Dosage: DOSE: 30 GY
     Dates: start: 20050101

REACTIONS (1)
  - RENAL FAILURE CHRONIC [None]
